FAERS Safety Report 9894174 (Version 1)
Quarter: 2014Q1

REPORT INFORMATION
  Report Type: Spontaneous
  Country: CH (occurrence: CH)
  Receive Date: 20140213
  Receipt Date: 20140213
  Transmission Date: 20141002
  Serious: Yes (Hospitalization)
  Sender: FDA-Public Use
  Company Number: PHHY2014CH016877

PATIENT
  Age: 48 Year
  Sex: Female
  Weight: 80 kg

DRUGS (2)
  1. VOLTAREN [Suspect]
     Indication: SCIATICA
     Dosage: 1 DF, UNK
     Route: 048
     Dates: end: 20140121
  2. VOLTAREN [Suspect]
     Indication: BACK PAIN

REACTIONS (9)
  - Sinus tachycardia [Recovered/Resolved]
  - Palpitations [Unknown]
  - Paraesthesia oral [Recovered/Resolved]
  - Chest pain [Recovered/Resolved]
  - Chest discomfort [Unknown]
  - Throat tightness [Unknown]
  - Nausea [Recovered/Resolved]
  - Headache [Recovered/Resolved]
  - Wrong technique in drug usage process [Recovered/Resolved]
